FAERS Safety Report 9203599 (Version 4)
Quarter: 2014Q1

REPORT INFORMATION
  Report Type: Spontaneous
  Country: JP (occurrence: JP)
  Receive Date: 20130402
  Receipt Date: 20140303
  Transmission Date: 20141002
  Serious: Yes (Other)
  Sender: FDA-Public Use
  Company Number: PHHY2013JP031776

PATIENT
  Age: 38 Year
  Sex: Male
  Weight: 90 kg

DRUGS (6)
  1. TASIGNA [Suspect]
     Indication: CHRONIC MYELOID LEUKAEMIA
     Dosage: 600 MG, DAILY
     Route: 048
     Dates: start: 20130116, end: 20130227
  2. TASIGNA [Suspect]
     Dosage: 300 MG, DAILY
     Route: 048
     Dates: start: 20130306, end: 20130319
  3. TASIGNA [Suspect]
     Dosage: 300 MG, DAY
     Route: 048
     Dates: start: 20130325, end: 20130620
  4. TASIGNA [Suspect]
     Dosage: 300 MG, DAY
     Route: 048
     Dates: start: 20130621
  5. FEBURIC [Concomitant]
     Indication: HYPERURICAEMIA
     Dosage: 10 MG
     Route: 048
     Dates: start: 20130828
  6. FEBURIC [Concomitant]
     Dosage: 20 MG
     Route: 048

REACTIONS (1)
  - Rhabdomyolysis [Not Recovered/Not Resolved]
